FAERS Safety Report 15648114 (Version 5)
Quarter: 2021Q1

REPORT INFORMATION
  Report Type: Spontaneous
  Country: US (occurrence: US)
  Receive Date: 20181122
  Receipt Date: 20210302
  Transmission Date: 20210419
  Serious: Yes (Other)
  Sender: FDA-Public Use
  Company Number: US-PFIZER INC-2018469866

PATIENT
  Age: 53 Year
  Sex: Female
  Weight: 110 kg

DRUGS (6)
  1. LYRICA [Suspect]
     Active Substance: PREGABALIN
     Dosage: UNK
     Dates: end: 201904
  2. LYRICA [Suspect]
     Active Substance: PREGABALIN
     Dosage: 450 MG, DAILY (APPROXIMATELY)
     Route: 048
     Dates: start: 20181109
  3. LYRICA [Suspect]
     Active Substance: PREGABALIN
     Indication: DIABETIC NEUROPATHY
     Dosage: 150 MG, 2X/DAY
     Route: 048
     Dates: start: 201808
  4. LYRICA [Suspect]
     Active Substance: PREGABALIN
     Dosage: 200 MG, 3X/DAY
  5. LYRICA [Suspect]
     Active Substance: PREGABALIN
     Dosage: 200 MG, 2X/DAY
     Route: 048
     Dates: end: 201810
  6. LYRICA [Suspect]
     Active Substance: PREGABALIN
     Dosage: 6?8 CAPSULES, DAILY
     Route: 048

REACTIONS (8)
  - Pain in extremity [Unknown]
  - Condition aggravated [Not Recovered/Not Resolved]
  - Paronychia [Not Recovered/Not Resolved]
  - Intentional product misuse [Unknown]
  - Diabetic neuropathy [Not Recovered/Not Resolved]
  - Off label use [Unknown]
  - Feeling abnormal [Unknown]
  - Fatigue [Unknown]

NARRATIVE: CASE EVENT DATE: 2018
